FAERS Safety Report 9377969 (Version 2)
Quarter: 2013Q4

REPORT INFORMATION
  Report Type: Spontaneous
  Country: US (occurrence: US)
  Receive Date: 20130701
  Receipt Date: 20131119
  Transmission Date: 20140711
  Serious: Yes (Other)
  Sender: FDA-Public Use
  Company Number: US-BAYER-2013-078166

PATIENT
  Age: 85 Year
  Sex: Female
  Weight: 65 kg

DRUGS (9)
  1. BAYER ASPIRIN REGIMEN ADULT LOW STRENGTH [Suspect]
     Indication: CEREBROVASCULAR ACCIDENT PROPHYLAXIS
     Dosage: UNK
  2. BAYER ASPIRIN REGIMEN ADULT LOW STRENGTH [Suspect]
     Indication: UNEVALUABLE EVENT
  3. BAYER ASPIRIN QUICK RELEASE CRYSTALS [Suspect]
     Indication: ATRIAL FIBRILLATION
     Dosage: 1 DOSE, QD
     Route: 048
     Dates: start: 20130617
  4. LISINOPRIL HYDROCHLORTHIAZID [Concomitant]
  5. LOVASTATIN [Concomitant]
  6. KLOR-CON [Concomitant]
  7. LUCENTIS [Concomitant]
  8. OSTEO BI-FLEX [Concomitant]
  9. LORAZEPAM [Concomitant]

REACTIONS (5)
  - Atrial fibrillation [None]
  - Blood pressure increased [None]
  - Dizziness [None]
  - Off label use [None]
  - Expired drug administered [None]
